FAERS Safety Report 9290954 (Version 2)
Quarter: 2013Q2

REPORT INFORMATION
  Report Type: Spontaneous
  Country: BR (occurrence: None)
  Receive Date: 20130513
  Receipt Date: 20130513
  Transmission Date: 20140414
  Serious: Yes (Other)
  Sender: FDA-Public Use
  Company Number: 7208979

PATIENT
  Age: 50 Year
  Sex: Female

DRUGS (2)
  1. LEVOTHYROXINE SODIUM [Suspect]
     Indication: HYPOTHYROIDISM
     Dosage: 1 TABLET IN THE MORNING)?
     Dates: start: 20100101
  2. CALCIUM (CALCIUM) (CALCIUM) [Concomitant]

REACTIONS (4)
  - Blood thyroid stimulating hormone increased [None]
  - Dizziness [None]
  - Fatigue [None]
  - Drug ineffective [None]
